FAERS Safety Report 6887444-3 (Version None)
Quarter: 2010Q3

REPORT INFORMATION
  Report Type: 
  Country: None (occurrence: None)
  Receive Date: 20100730
  Receipt Date: 20100721
  Transmission Date: 20110219
  Serious: Yes (Other)
  Sender: FDA-Public Use
  Company Number: CA-JNJFOC-20100707434

PATIENT
  Sex: Female
  Weight: 125 kg

DRUGS (3)
  1. REMICADE [Suspect]
     Indication: RHEUMATOID ARTHRITIS
     Dosage: DOSE ^345MGX9/6^
     Route: 042
  2. BENADRYL [Concomitant]
     Route: 042
  3. ACETAMINOPHEN [Concomitant]
     Route: 048

REACTIONS (3)
  - ERYTHEMA [None]
  - SKIN WARM [None]
  - SWELLING [None]
